FAERS Safety Report 21908026 (Version 4)
Quarter: 2024Q2

REPORT INFORMATION
  Report Type: Report from Study
  Country: US (occurrence: US)
  Receive Date: 20230125
  Receipt Date: 20240401
  Transmission Date: 20240716
  Serious: Yes (Hospitalization)
  Sender: FDA-Public Use
  Company Number: US-ABBVIE-4280923

PATIENT
  Age: 57 Year
  Sex: Female

DRUGS (4)
  1. RINVOQ [Suspect]
     Active Substance: UPADACITINIB
     Indication: Rheumatoid arthritis
     Route: 048
  2. RINVOQ [Suspect]
     Active Substance: UPADACITINIB
     Indication: Rheumatoid arthritis
     Route: 048
     Dates: end: 202301
  3. RINVOQ [Suspect]
     Active Substance: UPADACITINIB
     Indication: Rheumatoid arthritis
     Dosage: FORM STRENGTH: 15 MILLIGRAM
     Route: 048
  4. METHOTREXATE [Suspect]
     Active Substance: METHOTREXATE
     Indication: Product used for unknown indication
     Route: 065

REACTIONS (14)
  - Aneurysm [Not Recovered/Not Resolved]
  - Hypoaesthesia [Unknown]
  - Drug hypersensitivity [Unknown]
  - COVID-19 [Unknown]
  - Restless legs syndrome [Unknown]
  - Nerve injury [Unknown]
  - Intracranial aneurysm [Unknown]
  - Speech disorder [Unknown]
  - Dyspnoea [Unknown]
  - Rash [Unknown]
  - Neuropathy peripheral [Unknown]
  - Adverse drug reaction [Unknown]
  - Muscular weakness [Unknown]
  - Tremor [Unknown]

NARRATIVE: CASE EVENT DATE: 20230103
